FAERS Safety Report 7551274-X (Version None)
Quarter: 2011Q2

REPORT INFORMATION
  Report Type: 
  Country: None (occurrence: None)
  Receive Date: 20110616
  Receipt Date: 20110610
  Transmission Date: 20111010
  Serious: Yes (Death, Other)
  Sender: FDA-Public Use
  Company Number: PHHY2011JP33820

PATIENT
  Age: 73 Year
  Sex: Female

DRUGS (5)
  1. IMATINIB MESYLATE [Suspect]
     Indication: PULMONARY VENO-OCCLUSIVE DISEASE
     Dosage: 50 MG, DAILY
     Route: 048
     Dates: start: 20090201
  2. IMATINIB MESYLATE [Suspect]
     Dosage: 100 MG, DAILY
     Route: 048
  3. DIURETICS [Concomitant]
  4. BERAPROST [Concomitant]
  5. IMATINIB MESYLATE [Suspect]
     Dosage: 50 MG, DAILY
     Route: 048

REACTIONS (8)
  - DILATATION VENTRICULAR [None]
  - GENERAL PHYSICAL HEALTH DETERIORATION [None]
  - PANCYTOPENIA [None]
  - DILATATION ATRIAL [None]
  - PERICARDIAL EFFUSION [None]
  - DRUG INEFFECTIVE [None]
  - VENTRICULAR HYPERTROPHY [None]
  - RIGHT VENTRICULAR FAILURE [None]
